FAERS Safety Report 7720607-3 (Version None)
Quarter: 2011Q3

REPORT INFORMATION
  Report Type: 
  Country: None (occurrence: None)
  Receive Date: 20110831
  Receipt Date: 20110817
  Transmission Date: 20111222
  Serious: Yes (Hospitalization)
  Sender: FDA-Public Use
  Company Number: US-ELI_LILLY_AND_COMPANY-US200910002126

PATIENT
  Sex: Female

DRUGS (8)
  1. FORTEO [Suspect]
     Dosage: 20 UG, DAILY (1/D)
  2. FOSAMAX [Concomitant]
  3. FORTEO [Suspect]
     Dosage: 20 UG, QD
     Dates: end: 20110101
  4. VITAMIN TAB [Concomitant]
  5. FORTEO [Suspect]
     Indication: OSTEOPOROSIS
     Dosage: 20 UG, DAILY (1/D)
  6. FORTEO [Suspect]
     Dosage: 20 UG, DAILY (1/D)
  7. FORTEO [Suspect]
     Dosage: 20 UG, DAILY (1/D)
  8. ASPIRIN [Concomitant]

REACTIONS (3)
  - CONSTIPATION [None]
  - FALL [None]
  - HIP FRACTURE [None]
